FAERS Safety Report 6712742-3 (Version None)
Quarter: 2010Q2

REPORT INFORMATION
  Report Type: 
  Country: None (occurrence: None)
  Receive Date: 20100505
  Receipt Date: 20100505
  Transmission Date: 20101027
  Serious: Yes (Life-Threatening)
  Sender: FDA-Public Use
  Company Number: None

PATIENT
  Sex: Female

DRUGS (1)
  1. FENTANYL 50MCG WATSON  EVERY  72 HOURS TRANSDERMAL 061 [Suspect]
     Indication: PAIN
     Dosage: 50MCG EVERY 72 HOURS TRANSDERMAL 061
     Route: 062
     Dates: start: 20100413, end: 20100416

REACTIONS (4)
  - BALANCE DISORDER [None]
  - DRUG DISPENSING ERROR [None]
  - INCORRECT DOSE ADMINISTERED [None]
  - OXYGEN SATURATION DECREASED [None]
